FAERS Safety Report 8883424 (Version 1)
Quarter: 2012Q4

REPORT INFORMATION
  Report Type: 
  Country: BR (occurrence: BR)
  Receive Date: 20121102
  Receipt Date: 20121102
  Transmission Date: 20130627
  Serious: Yes (Other)
  Sender: FDA-Public Use
  Company Number: BR-ASTRAZENECA-2012SE82218

PATIENT
  Age: 776 Month
  Sex: Male
  Weight: 78 kg

DRUGS (4)
  1. ATACAND HCT [Suspect]
     Indication: HYPERTENSION
     Dosage: 8/12.5 MG ONE DAILY
     Route: 048
     Dates: end: 20121014
  2. ATACAND HCT [Suspect]
     Indication: HYPERTENSION
     Dosage: 16/12.5 MG ONE DAILY
     Route: 048
     Dates: start: 20121015
  3. FINASTERIDE [Concomitant]
     Indication: PROSTATOMEGALY
     Dosage: 2008
     Route: 048
     Dates: start: 201205, end: 20121014
  4. UNKNOWN [Concomitant]
     Indication: VARICOSE VEIN
     Route: 048
     Dates: start: 201206, end: 20121014

REACTIONS (6)
  - Prostatomegaly [Not Recovered/Not Resolved]
  - Varicose vein [Not Recovered/Not Resolved]
  - Cardiac stress test abnormal [Not Recovered/Not Resolved]
  - Palpitations [Not Recovered/Not Resolved]
  - Headache [Not Recovered/Not Resolved]
  - Dry mouth [Not Recovered/Not Resolved]
